FAERS Safety Report 13191326 (Version 1)
Quarter: 2017Q1

REPORT INFORMATION
  Report Type: Spontaneous
  Country: US (occurrence: US)
  Receive Date: 20170207
  Receipt Date: 20170207
  Transmission Date: 20170428
  Serious: Yes (Hospitalization, Other)
  Sender: FDA-Public Use
  Company Number: US-KYOWAKIRIN-2017BKK000187

PATIENT

DRUGS (5)
  1. SANCUSO [Suspect]
     Active Substance: GRANISETRON
     Dosage: UNK
     Route: 062
  2. ZOFRAN [Concomitant]
     Active Substance: ONDANSETRON HYDROCHLORIDE
     Indication: NAUSEA
     Dosage: 8 MG, PRN
     Route: 065
  3. SANCUSO [Suspect]
     Active Substance: GRANISETRON
     Indication: HEADACHE
     Dosage: 1 DF, UNKNOWN
     Route: 062
     Dates: start: 201701
  4. PHENERGAN [Concomitant]
     Active Substance: PROMETHAZINE HYDROCHLORIDE
     Indication: HEADACHE
     Dosage: UNKNOWN, PRN
     Route: 065
  5. SANCUSO [Suspect]
     Active Substance: GRANISETRON
     Indication: NAUSEA
     Dosage: 4 DF, UNKNOWN
     Route: 062
     Dates: start: 201701

REACTIONS (10)
  - Wrong technique in product usage process [Not Recovered/Not Resolved]
  - Headache [Unknown]
  - Drug prescribing error [Unknown]
  - Drug administered at inappropriate site [Unknown]
  - Fatigue [Unknown]
  - Product adhesion issue [Unknown]
  - Nausea [Unknown]
  - Expired product administered [Unknown]
  - Psychotic disorder [Unknown]
  - Product use issue [Not Recovered/Not Resolved]

NARRATIVE: CASE EVENT DATE: 201701
